FAERS Safety Report 4628330-9 (Version None)
Quarter: 2005Q2

REPORT INFORMATION
  Report Type: 
  Country: None (occurrence: None)
  Receive Date: 20050401
  Receipt Date: 20050314
  Transmission Date: 20051028
  Serious: Yes (Other)
  Sender: FDA-Public Use
  Company Number: 1767

PATIENT
  Age: 45 Year
  Sex: Female

DRUGS (5)
  1. AVINZA [Suspect]
     Indication: PAIN MANAGEMENT
     Dosage: 90 MG QD PO
     Route: 048
     Dates: start: 20040501, end: 20040606
  2. HYDROXYZINE [Concomitant]
  3. OXYCODONE AND ACETAMINOPHEN [Concomitant]
  4. PREDNISOLONE [Concomitant]
  5. SULFAMETHOXAZOLE AND TRIMETHOPRIM [Concomitant]

REACTIONS (2)
  - GASTROINTESTINAL HAEMORRHAGE [None]
  - STAPHYLOCOCCAL SEPSIS [None]
